FAERS Safety Report 20731713 (Version 1)
Quarter: 2022Q2

REPORT INFORMATION
  Report Type: Spontaneous
  Country: US (occurrence: US)
  Receive Date: 20220420
  Receipt Date: 20220420
  Transmission Date: 20220720
  Serious: No
  Sender: FDA-Public Use
  Company Number: US-SA-SAC20220419000872

PATIENT
  Age: 16 Year
  Sex: Male

DRUGS (1)
  1. DUPIXENT [Suspect]
     Active Substance: DUPILUMAB
     Indication: Dermatitis
     Dosage: DOSE: 300MG/2ML,300 MG/ML, QOW
     Route: 058
     Dates: start: 20210722

REACTIONS (2)
  - Adverse drug reaction [Recovering/Resolving]
  - Product use in unapproved indication [Unknown]
